FAERS Safety Report 4835884-6 (Version None)
Quarter: 2005Q4

REPORT INFORMATION
  Report Type: 
  Country: None (occurrence: None)
  Receive Date: 20051123
  Receipt Date: 20050905
  Transmission Date: 20060501
  Serious: Yes (Hospitalization)
  Sender: FDA-Public Use
  Company Number: 2005SE05015

PATIENT
  Age: 23099 Day
  Sex: Male
  Weight: 45 kg

DRUGS (7)
  1. TCV-116 [Suspect]
     Indication: DIABETIC NEPHROPATHY
     Route: 048
     Dates: start: 20050712, end: 20050808
  2. TCV-116 [Suspect]
     Route: 048
     Dates: start: 20050809
  3. GLUCOBAY [Concomitant]
     Indication: DIABETES MELLITUS NON-INSULIN-DEPENDENT
     Route: 048
     Dates: start: 19990617
  4. KINEDAK [Concomitant]
     Indication: DIABETIC NEUROPATHY
     Route: 048
     Dates: start: 20010629
  5. OPALMON(LIMAPROST ALFADEX) [Concomitant]
     Indication: DIABETIC NEUROPATHY
     Route: 048
     Dates: start: 20030212
  6. NORVASC [Concomitant]
     Indication: HYPERTENSION
     Route: 048
     Dates: start: 20050518
  7. NOVOLIN R [Concomitant]
     Indication: DIABETES MELLITUS NON-INSULIN-DEPENDENT
     Route: 058
     Dates: start: 20050419

REACTIONS (10)
  - BLOOD PRESSURE INCREASED [None]
  - CONTUSION [None]
  - FALL [None]
  - HAEMORRHAGE [None]
  - HEAD INJURY [None]
  - HYPOAESTHESIA [None]
  - HYPOGLYCAEMIA [None]
  - SKIN LACERATION [None]
  - SPINAL FRACTURE [None]
  - VERTEBRAL INJURY [None]
